FAERS Safety Report 17021267 (Version 1)
Quarter: 2019Q4

REPORT INFORMATION
  Report Type: Spontaneous
  Country: US (occurrence: US)
  Receive Date: 20191111
  Receipt Date: 20191111
  Transmission Date: 20200122
  Serious: Yes (Hospitalization)
  Sender: FDA-Public Use
  Company Number: None

PATIENT
  Age: 85 Year
  Sex: Female

DRUGS (1)
  1. CAPECITABINE. [Suspect]
     Active Substance: CAPECITABINE
     Indication: COLON CANCER
     Route: 048
     Dates: start: 20190926, end: 20191111

REACTIONS (5)
  - Renal failure [None]
  - Acidosis [None]
  - Vomiting [None]
  - Diarrhoea [None]
  - Full blood count decreased [None]

NARRATIVE: CASE EVENT DATE: 20191111
